FAERS Safety Report 10217216 (Version 1)
Quarter: 2014Q2

REPORT INFORMATION
  Report Type: Spontaneous
  Country: US (occurrence: US)
  Receive Date: 20140604
  Receipt Date: 20140604
  Transmission Date: 20141212
  Serious: Yes (Death, Hospitalization, Other)
  Sender: FDA-Public Use
  Company Number: US-ACTAVIS-2014-12116

PATIENT
  Age: 28 Year
  Sex: Female
  Weight: 70 kg

DRUGS (7)
  1. IBUPROFEN (AMALLC) [Suspect]
     Indication: CONTUSION
     Dosage: 800 MG, TID
     Route: 065
  2. IBUPROFEN (AMALLC) [Suspect]
     Indication: LIGAMENT SPRAIN
  3. IBUPROFEN (AMALLC) [Suspect]
     Indication: LIGAMENT SPRAIN
  4. VALDECOXIB [Suspect]
     Indication: PRODUCT USED FOR UNKNOWN INDICATION
     Dosage: 10 MG, DAILY; ON DAYS 76, 106 AND 134
     Route: 065
  5. METAXALONE [Suspect]
     Indication: PRODUCT USED FOR UNKNOWN INDICATION
     Dosage: 800 MG, TID
     Route: 065
  6. METHOCARBAMOL [Suspect]
     Indication: PRODUCT USED FOR UNKNOWN INDICATION
     Dosage: 750 MG, QID
     Route: 065
  7. CYCLOBENZAPRINE [Concomitant]
     Indication: PRODUCT USED FOR UNKNOWN INDICATION
     Dosage: 10 MG, QHS
     Route: 065

REACTIONS (9)
  - Renal failure [Fatal]
  - Respiratory failure [Fatal]
  - Haemorrhage intracranial [Fatal]
  - Cardiomyopathy [Fatal]
  - Diabetes mellitus [Fatal]
  - Hypertension [Fatal]
  - Coma [Not Recovered/Not Resolved]
  - Menorrhagia [Unknown]
  - Gastritis [Not Recovered/Not Resolved]
